FAERS Safety Report 17658188 (Version 2)
Quarter: 2020Q2

REPORT INFORMATION
  Report Type: Spontaneous
  Country: US (occurrence: US)
  Receive Date: 20200411
  Receipt Date: 20200602
  Transmission Date: 20200713
  Serious: Yes (Other)
  Sender: FDA-Public Use
  Company Number: US-NAPPMUNDI-USA-2020-0151570

PATIENT
  Sex: Female

DRUGS (6)
  1. OXYCONTIN [Suspect]
     Active Substance: OXYCODONE HYDROCHLORIDE
     Dosage: 40 MG, TID
     Route: 048
  2. APAP W/HYDROCODONE [Suspect]
     Active Substance: ACETAMINOPHEN\HYDROCODONE
     Indication: SPINAL OPERATION
     Dosage: 1000 MG, TID
     Route: 048
     Dates: start: 1993, end: 2011
  3. SOMA [Suspect]
     Active Substance: CARISOPRODOL
     Indication: PRODUCT USED FOR UNKNOWN INDICATION
     Route: 048
  4. OXYCODONE HYDROCHLORIDE (SIMILAR TO NDA 22-272) [Suspect]
     Active Substance: OXYCODONE HYDROCHLORIDE
     Indication: PRODUCT USED FOR UNKNOWN INDICATION
     Dosage: UNKNOWN
     Route: 048
  5. OXYCONTIN [Suspect]
     Active Substance: OXYCODONE HYDROCHLORIDE
     Indication: SPINAL OPERATION
     Dosage: 20 MG, 1-2 TABLETS BID THEN TID
     Route: 048
     Dates: start: 2000, end: 20111124
  6. OXYCONTIN [Suspect]
     Active Substance: OXYCODONE HYDROCHLORIDE
     Dosage: 80 MG, UNK
     Route: 048
     Dates: start: 2009, end: 2010

REACTIONS (11)
  - Drug abuse [Unknown]
  - Withdrawal syndrome [Unknown]
  - Vomiting [Unknown]
  - Urinary incontinence [Unknown]
  - Drug ineffective [Unknown]
  - Staphylococcal infection [Unknown]
  - Sensory loss [Unknown]
  - Gait inability [Unknown]
  - Headache [Unknown]
  - Drug dependence [Unknown]
  - Complication associated with device [Unknown]

NARRATIVE: CASE EVENT DATE: 2002
